FAERS Safety Report 9164751 (Version 2)
Quarter: 2013Q2

REPORT INFORMATION
  Report Type: Spontaneous
  Country: US (occurrence: US)
  Receive Date: 20130315
  Receipt Date: 20130502
  Transmission Date: 20140414
  Serious: Yes (Other)
  Sender: FDA-Public Use
  Company Number: US-PFIZER INC-2013086064

PATIENT
  Age: 36 Year
  Sex: Male

DRUGS (2)
  1. LIPITOR [Suspect]
     Dosage: 10 MG, 1X/DAY (DAILY)
  2. AMLODIPINE BESYLATE [Concomitant]
     Dosage: UNK

REACTIONS (1)
  - Back disorder [Unknown]
